FAERS Safety Report 10961089 (Version 2)
Quarter: 2015Q4

REPORT INFORMATION
  Report Type: Spontaneous
  Country: FR (occurrence: None)
  Receive Date: 20150325
  Receipt Date: 20151007
  Transmission Date: 20160304
  Serious: Yes (Hospitalization)
  Sender: FDA-Public Use
  Company Number: TPU2015-00112

PATIENT
  Age: 18 Year
  Sex: Female

DRUGS (5)
  1. LYRICA [Suspect]
     Active Substance: PREGABALIN
     Indication: PRODUCT USED FOR UNKNOWN INDICATION
     Route: 048
     Dates: start: 201410
  2. MONOCRIXO [Suspect]
     Active Substance: TRAMADOL HYDROCHLORIDE
     Route: 048
     Dates: start: 20141209
  3. LAROXYL [Suspect]
     Active Substance: AMITRIPTYLINE
     Indication: SLEEP DISORDER
     Route: 048
     Dates: start: 20141209, end: 20150110
  4. VERSATIS (LIDOCAINE PATCH 5%) (5 PERCENT, POULTICE OR PATCH) [Suspect]
     Active Substance: LIDOCAINE
     Indication: PRODUCT USED FOR UNKNOWN INDICATION
     Route: 061
     Dates: start: 20141209, end: 20150110
  5. SOLUPRED (PREDNISOLONE) [Concomitant]
     Active Substance: PREDNISOLONE

REACTIONS (8)
  - Suicidal ideation [None]
  - Aggression [None]
  - Anxiety [None]
  - Hallucination, visual [None]
  - Road traffic accident [None]
  - Mood altered [None]
  - Inappropriate affect [None]
  - Somnambulism [None]

NARRATIVE: CASE EVENT DATE: 20141219
